FAERS Safety Report 18521703 (Version 1)
Quarter: 2020Q4

REPORT INFORMATION
  Report Type: Other
  Country: CA (occurrence: CA)
  Receive Date: 20201119
  Receipt Date: 20201119
  Transmission Date: 20210114
  Serious: Yes (Other)
  Sender: FDA-Public Use
  Company Number: CA-APOTEX-2020AP021693

PATIENT
  Age: 56 Year
  Sex: Female

DRUGS (6)
  1. CYCLOSPORINE. [Suspect]
     Active Substance: CYCLOSPORINE
     Indication: CHRONIC SPONTANEOUS URTICARIA
     Dosage: UNK
     Route: 065
  2. OMALIZUMAB. [Suspect]
     Active Substance: OMALIZUMAB
     Dosage: UNK
     Route: 058
  3. OMALIZUMAB. [Suspect]
     Active Substance: OMALIZUMAB
     Dosage: 300 MILLIGRAM
     Route: 058
  4. OMALIZUMAB. [Suspect]
     Active Substance: OMALIZUMAB
     Dosage: 300 MILLIGRAM
     Route: 058
  5. OMALIZUMAB. [Suspect]
     Active Substance: OMALIZUMAB
     Indication: CHRONIC SPONTANEOUS URTICARIA
     Dosage: 300 MILLIGRAM
     Route: 058
  6. RUPATADINE FUMARATE [Concomitant]
     Active Substance: RUPATADINE FUMARATE
     Indication: CHRONIC SPONTANEOUS URTICARIA
     Dosage: 1 DOSAGE FORM, BID
     Route: 048

REACTIONS (9)
  - Enteritis [Unknown]
  - Hypertension [Unknown]
  - Affective disorder [Unknown]
  - Product use in unapproved indication [Unknown]
  - Arrhythmia [Unknown]
  - Stress [Unknown]
  - Pruritus [Unknown]
  - Urticaria [Unknown]
  - Anxiety [Unknown]
